FAERS Safety Report 12361632 (Version 6)
Quarter: 2019Q3

REPORT INFORMATION
  Report Type: Report from Study
  Country: US (occurrence: US)
  Receive Date: 20160512
  Receipt Date: 20190904
  Transmission Date: 20191004
  Serious: Yes (Other)
  Sender: FDA-Public Use
  Company Number: US-SA-2016SA060273

PATIENT
  Age: 75 Year
  Sex: Female

DRUGS (1)
  1. ALIROCUMAB [Suspect]
     Active Substance: ALIROCUMAB
     Indication: TYPE V HYPERLIPIDAEMIA
     Dosage: 75 MG,QOW
     Route: 058
     Dates: start: 201511

REACTIONS (10)
  - Condition aggravated [Unknown]
  - Fatigue [Unknown]
  - Trigger finger [Unknown]
  - Pain in extremity [Unknown]
  - Mycobacterial infection [Recovering/Resolving]
  - Muscle spasms [Unknown]
  - Oropharyngeal pain [Recovering/Resolving]
  - Vomiting [Recovered/Resolved]
  - Swollen tongue [Unknown]
  - Loss of consciousness [Unknown]

NARRATIVE: CASE EVENT DATE: 20160312
